FAERS Safety Report 15114508 (Version 1)
Quarter: 2018Q3

REPORT INFORMATION
  Report Type: Spontaneous
  Country: GB (occurrence: GB)
  Receive Date: 20180706
  Receipt Date: 20180706
  Transmission Date: 20181010
  Serious: Yes (Other)
  Sender: FDA-Public Use
  Company Number: GB-TEVA-2018-GB-922358

PATIENT
  Age: 66 Year
  Sex: Male
  Weight: 86.52 kg

DRUGS (6)
  1. BECONASE AQ [Suspect]
     Active Substance: BECLOMETHASONE DIPROPIONATE MONOHYDRATE
     Indication: SINONASAL OBSTRUCTION
     Dosage: 2 DOSAGE FORMS DAILY; PUFFS
     Route: 045
     Dates: start: 20180523, end: 20180523
  2. DOXAZOSIN [Concomitant]
     Active Substance: DOXAZOSIN\DOXAZOSIN MESYLATE
  3. RAMIPRIL. [Concomitant]
     Active Substance: RAMIPRIL
  4. ZETIA [Concomitant]
     Active Substance: EZETIMIBE
  5. ATENOLOL. [Concomitant]
     Active Substance: ATENOLOL
  6. WARFARIN [Suspect]
     Active Substance: WARFARIN
     Indication: ATRIAL FIBRILLATION
     Route: 048
     Dates: start: 201405

REACTIONS (1)
  - Conjunctival haemorrhage [Recovered/Resolved]
